FAERS Safety Report 15867402 (Version 1)
Quarter: 2019Q1

REPORT INFORMATION
  Report Type: Spontaneous
  Country: US (occurrence: US)
  Receive Date: 20190102
  Receipt Date: 20190102
  Transmission Date: 20190417
  Serious: Yes (Other)
  Sender: FDA-Public Use
  Company Number: None

PATIENT
  Age: 44 Year

DRUGS (3)
  1. OXYCODONE [Suspect]
     Active Substance: OXYCODONE
     Indication: PAIN
     Dates: start: 20181128, end: 20181129
  2. OXYCODONE [Suspect]
     Active Substance: OXYCODONE
     Indication: DIABETES MELLITUS
     Dates: start: 20181128, end: 20181129
  3. OXYCODONE [Suspect]
     Active Substance: OXYCODONE
     Indication: DIABETES MELLITUS

REACTIONS (3)
  - Bradycardia [None]
  - Erythema [None]
  - Syncope [None]

NARRATIVE: CASE EVENT DATE: 20181129
